FAERS Safety Report 14329540 (Version 3)
Quarter: 2018Q1

REPORT INFORMATION
  Report Type: Report from Study
  Country: US (occurrence: US)
  Receive Date: 20171227
  Receipt Date: 20180307
  Transmission Date: 20180509
  Serious: Yes (Death, Other)
  Sender: FDA-Public Use
  Company Number: US-ACTELION-A-NJ2017-149660

PATIENT
  Age: 63 Year
  Sex: Male
  Weight: 83.9 kg

DRUGS (3)
  1. OPSUMIT [Suspect]
     Active Substance: MACITENTAN
     Indication: PULMONARY ARTERIAL HYPERTENSION
     Dosage: 10 MG, QD
     Route: 048
     Dates: start: 20170125, end: 20180227
  2. ADCIRCA [Concomitant]
     Active Substance: TADALAFIL
  3. TYVASO [Concomitant]
     Active Substance: TREPROSTINIL

REACTIONS (12)
  - Gastrointestinal sounds abnormal [Unknown]
  - Flushing [Unknown]
  - Death [Fatal]
  - Terminal state [Unknown]
  - Nasal congestion [Unknown]
  - Dyspnoea [Unknown]
  - Weight decreased [Unknown]
  - Wheezing [Unknown]
  - Abdominal distension [Unknown]
  - Lung squamous cell carcinoma stage IV [Unknown]
  - Sunburn [Unknown]
  - Lung disorder [Unknown]

NARRATIVE: CASE EVENT DATE: 20180227
